FAERS Safety Report 8558938-X (Version None)
Quarter: 2012Q3

REPORT INFORMATION
  Report Type: 
  Country: None (occurrence: None)
  Receive Date: 20120802
  Receipt Date: 20120723
  Transmission Date: 20120928
  Serious: Yes (Other)
  Sender: FDA-Public Use
  Company Number: FR-BRISTOL-MYERS SQUIBB COMPANY-16797359

PATIENT
  Age: 1 Day
  Sex: Male
  Weight: 3 kg

DRUGS (3)
  1. REYATAZ [Suspect]
     Route: 064
  2. TRUVADA [Suspect]
     Dosage: 1 DF: 200MG/245MG
     Route: 064
  3. NORVIR [Suspect]
     Route: 064

REACTIONS (1)
  - HAEMANGIOMA OF SKIN [None]
